FAERS Safety Report 22052167 (Version 1)
Quarter: 2023Q1

REPORT INFORMATION
  Report Type: Spontaneous
  Country: JP (occurrence: JP)
  Receive Date: 20230302
  Receipt Date: 20230302
  Transmission Date: 20230418
  Serious: Yes (Other)
  Sender: FDA-Public Use
  Company Number: JP-TAKEDA-2022TJP078291

PATIENT
  Age: 6 Decade
  Sex: Female

DRUGS (6)
  1. ALUNBRIG [Suspect]
     Active Substance: BRIGATINIB
     Indication: Non-small cell lung cancer
     Dosage: 180 MILLIGRAM, QD
     Route: 048
     Dates: start: 20221109
  2. ALUNBRIG [Suspect]
     Active Substance: BRIGATINIB
     Dosage: 90 MILLIGRAM, QD
     Route: 048
     Dates: start: 20230201
  3. RAMELTEON [Concomitant]
     Active Substance: RAMELTEON
     Dosage: UNK
     Route: 065
  4. CALCIUM CARBONATE\CHOLECALCIFEROL\MAGNESIUM CARBONATE [Concomitant]
     Active Substance: CALCIUM CARBONATE\CHOLECALCIFEROL\MAGNESIUM CARBONATE
     Dosage: UNK
     Route: 065
  5. PEMAFIBRATE [Concomitant]
     Active Substance: PEMAFIBRATE
     Dosage: UNK
     Route: 065
  6. DAYVIGO [Concomitant]
     Active Substance: LEMBOREXANT
     Dosage: UNK
     Route: 065

REACTIONS (4)
  - Proteinuria [Not Recovered/Not Resolved]
  - Proteinuria [Recovered/Resolved]
  - Diarrhoea [Recovered/Resolved]
  - Oedema [Unknown]

NARRATIVE: CASE EVENT DATE: 20221123
